FAERS Safety Report 21520600 (Version 3)
Quarter: 2022Q4

REPORT INFORMATION
  Report Type: Spontaneous
  Country: JP (occurrence: JP)
  Receive Date: 20221028
  Receipt Date: 20221118
  Transmission Date: 20230113
  Serious: Yes (Other)
  Sender: FDA-Public Use
  Company Number: JP-GLAXOSMITHKLINE-JP2022JPN152654

PATIENT

DRUGS (8)
  1. ALBUTEROL [Suspect]
     Active Substance: ALBUTEROL
     Dosage: 0.4 ML, TID
     Route: 055
     Dates: start: 20220922, end: 20220929
  2. TRELEGY ELLIPTA [Suspect]
     Active Substance: FLUTICASONE FUROATE\UMECLIDINIUM BROMIDE\VILANTEROL TRIFENATATE
     Indication: Asthma
     Dosage: 200 ?G
     Route: 055
     Dates: start: 20220928, end: 20220929
  3. CARBOPLATIN [Concomitant]
     Active Substance: CARBOPLATIN
     Indication: Small cell lung cancer
     Dosage: 300 MG, 1D
     Dates: start: 20220929, end: 20220929
  4. ETOPOSIDE [Concomitant]
     Active Substance: ETOPOSIDE
     Indication: Small cell lung cancer
     Dosage: 100 MG, 1D
     Dates: start: 20220929, end: 20220929
  5. TECENTRIQ [Concomitant]
     Active Substance: ATEZOLIZUMAB
     Indication: Small cell lung cancer
     Dosage: 1200 MG, 1D
     Dates: start: 20220929, end: 20220929
  6. SYMBICORT [Concomitant]
     Active Substance: BUDESONIDE\FORMOTEROL FUMARATE DIHYDRATE
     Indication: Asthma
     Dosage: 4 DF, 1D
     Route: 055
     Dates: end: 20220928
  7. BISOLVON INHALANT SOLUTION [Concomitant]
     Indication: Asthma
     Dosage: 1.5 ML, 1D
     Route: 055
     Dates: start: 20220922, end: 20220929
  8. SODIUM CHLORIDE [Concomitant]
     Active Substance: SODIUM CHLORIDE
     Dosage: 3 ML
     Route: 055

REACTIONS (3)
  - Angina pectoris [Recovering/Resolving]
  - Chest pain [Recovered/Resolved]
  - Tachycardia [Recovered/Resolved]

NARRATIVE: CASE EVENT DATE: 20220929
